FAERS Safety Report 5801226-2 (Version None)
Quarter: 2008Q3

REPORT INFORMATION
  Report Type: 
  Country: None (occurrence: None)
  Receive Date: 20080707
  Receipt Date: 20080702
  Transmission Date: 20090109
  Serious: Yes (Hospitalization)
  Sender: FDA-Public Use
  Company Number: DE-SP-2008-02185

PATIENT
  Sex: Female

DRUGS (1)
  1. IMMUCYST [Suspect]
     Indication: BLADDER CANCER
     Dosage: NOT REPORTED
     Route: 043

REACTIONS (2)
  - LEUKOPENIA [None]
  - PYREXIA [None]
